FAERS Safety Report 14152191 (Version 1)
Quarter: 2017Q4

REPORT INFORMATION
  Report Type: Spontaneous
  Country: US (occurrence: US)
  Receive Date: 20171102
  Receipt Date: 20171102
  Transmission Date: 20180321
  Serious: No
  Sender: FDA-Public Use
  Company Number: US-ASTRAZENECA-2017SF11045

PATIENT
  Sex: Female
  Weight: 70.3 kg

DRUGS (1)
  1. PRILOSEC [Suspect]
     Active Substance: OMEPRAZOLE MAGNESIUM
     Indication: DYSPEPSIA
     Dosage: UNKNOWN DOSE, DAILY
     Route: 048
     Dates: start: 2007, end: 201708

REACTIONS (1)
  - Urinary incontinence [Not Recovered/Not Resolved]
